FAERS Safety Report 25679508 (Version 2)
Quarter: 2025Q4

REPORT INFORMATION
  Report Type: Report from Study
  Country: IL (occurrence: IL)
  Receive Date: 20250814
  Receipt Date: 20251003
  Transmission Date: 20260117
  Serious: Yes (Other)
  Sender: CELLTRION
  Company Number: IL-CELLTRION INC.-2025IL027329

PATIENT

DRUGS (1)
  1. INFLIXIMAB [Suspect]
     Active Substance: INFLIXIMAB
     Indication: Crohn^s disease
     Dosage: 300 MG 1/TWO WEEKS (2 IV INFUSIONS)
     Route: 042
     Dates: start: 20250601

REACTIONS (2)
  - Crohn^s disease [Not Recovered/Not Resolved]
  - Inappropriate schedule of product administration [Unknown]
